FAERS Safety Report 21749376 (Version 1)
Quarter: 2022Q4

REPORT INFORMATION
  Report Type: Spontaneous
  Country: US (occurrence: US)
  Receive Date: 20221219
  Receipt Date: 20221219
  Transmission Date: 20230113
  Serious: No
  Sender: FDA-Public Use
  Company Number: US-PERRIGO-22US004440

PATIENT
  Sex: Male
  Weight: 76.19 kg

DRUGS (1)
  1. MIGRAINE FORMULA [Suspect]
     Active Substance: ACETAMINOPHEN\ASPIRIN\CAFFEINE
     Indication: Migraine
     Dosage: 2 TABLETS, QD PRN
     Route: 048
     Dates: end: 20220319

REACTIONS (2)
  - Dizziness [Recovered/Resolved]
  - Expired product administered [Recovered/Resolved]

NARRATIVE: CASE EVENT DATE: 20200101
